FAERS Safety Report 19913796 (Version 1)
Quarter: 2021Q4

REPORT INFORMATION
  Report Type: Spontaneous
  Country: KR (occurrence: KR)
  Receive Date: 20211004
  Receipt Date: 20211004
  Transmission Date: 20220303
  Serious: Yes (Other)
  Sender: FDA-Public Use
  Company Number: KR-VIIV HEALTHCARE LIMITED-KR2021APC203217

PATIENT
  Age: 53 Year
  Sex: Male
  Weight: 66.8 kg

DRUGS (3)
  1. KIVEXA [Suspect]
     Active Substance: ABACAVIR SULFATE\LAMIVUDINE
     Indication: HIV infection
     Dosage: UNK
     Route: 048
     Dates: start: 20181129
  2. DOLUTEGRAVIR [Suspect]
     Active Substance: DOLUTEGRAVIR
     Indication: HIV infection
     Dosage: UNK
     Route: 048
     Dates: start: 20181129, end: 20181213
  3. SULFAMETHOXAZOLE\TRIMETHOPRIM [Suspect]
     Active Substance: SULFAMETHOXAZOLE\TRIMETHOPRIM
     Indication: Parasitic pneumonia
     Dosage: UNK
     Route: 042
     Dates: start: 20181127, end: 20181212

REACTIONS (4)
  - Delirium [Not Recovered/Not Resolved]
  - Immune reconstitution inflammatory syndrome [Not Recovered/Not Resolved]
  - Asthenia [Not Recovered/Not Resolved]
  - Candida infection [Not Recovered/Not Resolved]

NARRATIVE: CASE EVENT DATE: 20181130
